FAERS Safety Report 5376744-4 (Version None)
Quarter: 2007Q3

REPORT INFORMATION
  Report Type: 
  Country: None (occurrence: None)
  Receive Date: 20070703
  Receipt Date: 20070621
  Transmission Date: 20080115
  Serious: Yes (Other)
  Sender: FDA-Public Use
  Company Number: PHBS2007NO10513

PATIENT
  Sex: Male

DRUGS (1)
  1. DESFERAL [Suspect]
     Indication: IRON OVERLOAD
     Route: 065

REACTIONS (4)
  - HEART RATE INCREASED [None]
  - HEPATIC FAILURE [None]
  - RENAL FAILURE [None]
  - SERUM FERRITIN INCREASED [None]
